FAERS Safety Report 7061078-2 (Version None)
Quarter: 2010Q4

REPORT INFORMATION
  Report Type: 
  Country: None (occurrence: None)
  Receive Date: 20101026
  Receipt Date: 20101015
  Transmission Date: 20110411
  Serious: Yes (Hospitalization, Other)
  Sender: FDA-Public Use
  Company Number: DE-PFIZER INC-2010067181

PATIENT
  Age: 67 Year
  Sex: Female

DRUGS (2)
  1. XALATAN [Suspect]
     Indication: GLAUCOMA
     Dosage: 1 GTT, 1X/DAY
     Route: 061
     Dates: start: 20090511
  2. PREDNISOLON [Concomitant]
     Indication: AUTOIMMUNE HEPATITIS
     Dosage: 5 MG, 1X/DAY

REACTIONS (13)
  - ARTHRITIS [None]
  - BLOOD CREATINE PHOSPHOKINASE INCREASED [None]
  - DEAFNESS BILATERAL [None]
  - DIZZINESS [None]
  - FEELING DRUNK [None]
  - JOINT ANKYLOSIS [None]
  - MUSCULAR WEAKNESS [None]
  - MYALGIA [None]
  - MYOGLOBIN BLOOD INCREASED [None]
  - OVERLAP SYNDROME [None]
  - SJOGREN'S SYNDROME [None]
  - TONGUE DISORDER [None]
  - VERTIGO [None]
